FAERS Safety Report 8255758-0 (Version None)
Quarter: 2012Q2

REPORT INFORMATION
  Report Type: 
  Country: None (occurrence: None)
  Receive Date: 20120403
  Receipt Date: 20120319
  Transmission Date: 20120825
  Serious: Yes (Other)
  Sender: FDA-Public Use
  Company Number: DE-ROCHE-1019203

PATIENT
  Weight: 63 kg

DRUGS (4)
  1. ACTEMRA [Suspect]
     Indication: RHEUMATOID ARTHRITIS
     Route: 065
     Dates: start: 20090813, end: 20100311
  2. CORTICOSTEROID (UNK INGREDIENTS) [Concomitant]
     Indication: RHEUMATOID ARTHRITIS
     Route: 048
  3. METHOTREXATE [Concomitant]
     Indication: RHEUMATOID ARTHRITIS
     Route: 058
  4. DICLOFENAC SODIUM [Concomitant]
     Route: 048

REACTIONS (2)
  - THROMBOSIS [None]
  - HERPES ZOSTER [None]
